FAERS Safety Report 7911882-0 (Version None)
Quarter: 2011Q4

REPORT INFORMATION
  Report Type: 
  Country: None (occurrence: None)
  Receive Date: 20111114
  Receipt Date: 20111107
  Transmission Date: 20120403
  Serious: Yes (Death, Hospitalization)
  Sender: FDA-Public Use
  Company Number: US-GILEAD-2011-0044588

PATIENT
  Age: 41 Year
  Sex: Male

DRUGS (2)
  1. EPOPROSTENOL SODIUM [Concomitant]
  2. LETAIRIS [Suspect]
     Indication: PRODUCT USED FOR UNKNOWN INDICATION
     Dosage: 10 MG, UNK
     Route: 048
     Dates: start: 20100225

REACTIONS (4)
  - DIAGNOSTIC PROCEDURE [None]
  - ABDOMINAL PAIN [None]
  - LYMPHOMA [None]
  - BACK PAIN [None]
